FAERS Safety Report 20182730 (Version 1)
Quarter: 2021Q4

REPORT INFORMATION
  Report Type: Spontaneous
  Country: US (occurrence: None)
  Receive Date: 20211214
  Receipt Date: 20211214
  Transmission Date: 20220303
  Serious: No
  Sender: FDA-Public Use
  Company Number: None

PATIENT
  Age: 53 Year
  Sex: Male
  Weight: 106.59 kg

DRUGS (1)
  1. TALTZ [Suspect]
     Active Substance: IXEKIZUMAB
     Indication: Psoriasis
     Dosage: OTHER FREQUENCY  AT WEEK 12, THEN EVERY 4 WEEKS AS DIRECTED;?
     Route: 058
     Dates: start: 202111

REACTIONS (2)
  - COVID-19 [None]
  - Therapy interrupted [None]
